FAERS Safety Report 8504154-7 (Version None)
Quarter: 2012Q3

REPORT INFORMATION
  Report Type: 
  Country: None (occurrence: None)
  Receive Date: 20120711
  Receipt Date: 20120702
  Transmission Date: 20120928
  Serious: No
  Sender: FDA-Public Use
  Company Number: US-009507513-1207USA000356

PATIENT

DRUGS (2)
  1. CABERGOLINE [Concomitant]
  2. NUVARING [Suspect]
     Indication: CONTRACEPTION
     Dosage: UNK
     Route: 067
     Dates: start: 20100101

REACTIONS (3)
  - BLOOD OESTROGEN DECREASED [None]
  - PROGESTERONE DECREASED [None]
  - BLOOD FOLLICLE STIMULATING HORMONE DECREASED [None]
